FAERS Safety Report 8485109 (Version 11)
Quarter: 2016Q1

REPORT INFORMATION
  Report Type: Report from Study
  Country: DE (occurrence: DE)
  Receive Date: 20120330
  Receipt Date: 20160216
  Transmission Date: 20160526
  Serious: Yes (Death, Hospitalization, Other)
  Sender: FDA-Public Use
  Company Number: DE-UCBSA-054126

PATIENT
  Age: 71 Year
  Sex: Female
  Weight: 112 kg

DRUGS (14)
  1. CERTOLIZUMAB PEGOL RA [Suspect]
     Active Substance: CERTOLIZUMAB PEGOL
     Indication: RHEUMATOID ARTHRITIS
     Dosage: NO OF DOSES RECEIVED: 50
     Route: 058
     Dates: start: 20100114
  2. AZATHIOPRINE. [Concomitant]
     Active Substance: AZATHIOPRINE
     Dosage: 50 MG, ONCE DAILY (QD)
     Route: 048
     Dates: start: 200902, end: 201202
  3. AZATHIOPRINE. [Concomitant]
     Active Substance: AZATHIOPRINE
     Dosage: 50 MG, 2X/DAY (BID)
     Route: 048
     Dates: start: 19941121, end: 20120327
  4. AZATHIOPRINE. [Concomitant]
     Active Substance: AZATHIOPRINE
     Dosage: 10 MG
  5. AZATHIOPRINE. [Concomitant]
     Active Substance: AZATHIOPRINE
     Dosage: 100 MG
  6. NOVAMINSULFON [Concomitant]
     Active Substance: METAMIZOLE
     Indication: RHEUMATOID ARTHRITIS
     Dosage: 500 MG, 2X/DAY (BID)
     Route: 048
     Dates: start: 20090212, end: 20120130
  7. AZATHIOPRINE. [Concomitant]
     Active Substance: AZATHIOPRINE
     Indication: RHEUMATOID ARTHRITIS
     Dosage: 50 MG, ONCE DAILY (QD)
     Route: 048
     Dates: start: 200610, end: 200809
  8. AZATHIOPRINE. [Concomitant]
     Active Substance: AZATHIOPRINE
     Dosage: 100 MG
  9. LYRICA [Concomitant]
     Active Substance: PREGABALIN
     Indication: DIABETIC NEUROPATHY
     Dosage: 1-0-2
  10. MIRTAZEPIN [Concomitant]
     Active Substance: MIRTAZAPINE
     Indication: DIABETIC NEUROPATHY
     Dosage: 0-0-0-1
  11. PREDNISOLONE. [Concomitant]
     Active Substance: PREDNISOLONE
     Dosage: 5 MG AS NEEDED
     Route: 048
     Dates: start: 1993, end: 20120327
  12. PREDNISOLONE. [Concomitant]
     Active Substance: PREDNISOLONE
     Indication: RHEUMATOID ARTHRITIS
     Dosage: 5 MG, ONCE DAILY (QD)
     Route: 048
     Dates: start: 19940223, end: 20120130
  13. NOVAMINSULFON [Concomitant]
     Active Substance: METAMIZOLE
     Indication: POLYARTHRITIS
     Dosage: 500 MG, MONTHLY (QM)
     Route: 048
     Dates: start: 20090106
  14. NOVAMINSULFON [Concomitant]
     Active Substance: METAMIZOLE
     Indication: DIABETIC NEUROPATHY

REACTIONS (3)
  - Cerebral toxoplasmosis [Fatal]
  - Myocardial infarction [Fatal]
  - Diabetes mellitus [Recovered/Resolved]

NARRATIVE: CASE EVENT DATE: 20120130
